FAERS Safety Report 8370517-6 (Version None)
Quarter: 2012Q2

REPORT INFORMATION
  Report Type: 
  Country: None (occurrence: None)
  Receive Date: 20120518
  Receipt Date: 20120516
  Transmission Date: 20120825
  Serious: No
  Sender: FDA-Public Use
  Company Number: US-PFIZER INC-2012120036

PATIENT
  Age: 62 Year
  Sex: Female

DRUGS (7)
  1. SERTRALINE [Concomitant]
     Dosage: 80 MG DAILY
  2. DILANTIN [Suspect]
     Indication: CONVULSION
     Dosage: 200MG IN THE MORNING AND 300MG IN THE EVENING, 2X/DAY
     Route: 048
     Dates: start: 20110301
  3. KEPPRA [Concomitant]
     Dosage: 250 MG, 3X/DAY
  4. DILANTIN [Suspect]
     Dosage: UNK
     Route: 048
  5. DILANTIN-125 [Suspect]
     Indication: CONVULSION
     Dosage: 4 ML, 2X/DAY
     Route: 048
     Dates: start: 20100301, end: 20110101
  6. PHENOBARBITAL [Concomitant]
     Dosage: 30 MG, DAILY
  7. VALPROIC ACID [Concomitant]
     Dosage: 550 MG, 4X/DAY

REACTIONS (3)
  - ANTICONVULSANT DRUG LEVEL ABNORMAL [None]
  - MALAISE [None]
  - WRONG TECHNIQUE IN DRUG USAGE PROCESS [None]
